FAERS Safety Report 5533685-7 (Version None)
Quarter: 2007Q4

REPORT INFORMATION
  Report Type: 
  Country: None (occurrence: None)
  Receive Date: 20071129
  Receipt Date: 20071114
  Transmission Date: 20080405
  Serious: Yes (Hospitalization)
  Sender: FDA-Public Use
  Company Number: TUK2007A00131

PATIENT
  Sex: Male

DRUGS (6)
  1. ACTOS [Suspect]
     Indication: DIABETES MELLITUS
     Dosage: 30 MG ORAL
     Route: 048
     Dates: start: 20061211
  2. ASPIRIN [Concomitant]
  3. ATORVASTATIN CALCIUM [Concomitant]
  4. BENDROFLUMETHIAZIDE (BENDROFLUMETHIAZIDE) [Concomitant]
  5. PERINDOPRIL TERT-BUTYLAMINE (PERINDOPRIL) [Concomitant]
  6. PROPRANOLOL HYDROCHLORIDE [Concomitant]

REACTIONS (1)
  - ATRIAL FIBRILLATION [None]
